FAERS Safety Report 5203624-7 (Version None)
Quarter: 2007Q1

REPORT INFORMATION
  Report Type: 
  Country: None (occurrence: None)
  Receive Date: 20070105
  Receipt Date: 20061222
  Transmission Date: 20070707
  Serious: Yes (Death)
  Sender: FDA-Public Use
  Company Number: 090

PATIENT
  Sex: Female
  Weight: 158.759 kg

DRUGS (1)
  1. FAZACLO ODT [Suspect]
     Indication: SCHIZOPHRENIA
     Dosage: 600 MG PO DAILY
     Route: 048
     Dates: start: 20060920, end: 20061215

REACTIONS (1)
  - MYOCARDIAL INFARCTION [None]
